FAERS Safety Report 6857951-8 (Version None)
Quarter: 2010Q3

REPORT INFORMATION
  Report Type: 
  Country: None (occurrence: None)
  Receive Date: 20100714
  Receipt Date: 20100629
  Transmission Date: 20110219
  Serious: Yes (Other)
  Sender: FDA-Public Use
  Company Number: 2010AP001129

PATIENT
  Age: 29 Year
  Sex: Female

DRUGS (3)
  1. SERTRALINE HYDROCHLORIDE [Suspect]
     Indication: DEPRESSIVE SYMPTOM
     Dosage: 50 MG
  2. VENLAFAXINE HCL [Suspect]
     Indication: ANXIETY
     Dosage: 75 MG
  3. VENLAFAXINE HCL [Suspect]
     Indication: DEPRESSED MOOD
     Dosage: 75 MG

REACTIONS (3)
  - CONVERSION DISORDER [None]
  - DYSTONIA [None]
  - TREMOR [None]
